FAERS Safety Report 6738059-9 (Version None)
Quarter: 2010Q2

REPORT INFORMATION
  Report Type: 
  Country: None (occurrence: None)
  Receive Date: 20100520
  Receipt Date: 20100510
  Transmission Date: 20101027
  Serious: Yes (Hospitalization, Other)
  Sender: FDA-Public Use
  Company Number: AXC-2010-000134

PATIENT
  Age: 42 Year
  Sex: Male

DRUGS (2)
  1. MESALAMINE [Suspect]
     Indication: COLITIS ULCERATIVE
     Dosage: 3200 MG, QD
  2. BECLOMETHASONE DIPROPIONATE [Concomitant]

REACTIONS (18)
  - ANAEMIA [None]
  - BLOOD FIBRINOGEN INCREASED [None]
  - BLOOD LACTATE DEHYDROGENASE INCREASED [None]
  - DRUG HYPERSENSITIVITY [None]
  - DRUG TOXICITY [None]
  - EOSINOPHILIC PNEUMONIA [None]
  - FIBRIN D DIMER INCREASED [None]
  - HAEMATURIA [None]
  - LEUKOCYTURIA [None]
  - LUNG CONSOLIDATION [None]
  - MONOCYTE COUNT INCREASED [None]
  - NEUTROPHIL COUNT INCREASED [None]
  - NO THERAPEUTIC RESPONSE [None]
  - PERICARDIAL EFFUSION [None]
  - PERICARDITIS [None]
  - PROTEINURIA [None]
  - TUBULOINTERSTITIAL NEPHRITIS [None]
  - WHITE BLOOD CELL COUNT INCREASED [None]
